FAERS Safety Report 7176966-6 (Version None)
Quarter: 2010Q4

REPORT INFORMATION
  Report Type: 
  Country: None (occurrence: None)
  Receive Date: 20101207
  Receipt Date: 20101122
  Transmission Date: 20110411
  Serious: Yes (Hospitalization)
  Sender: FDA-Public Use
  Company Number: 022562

PATIENT
  Sex: Female
  Weight: 64.9 kg

DRUGS (1)
  1. CIMZIA [Suspect]
     Indication: CROHN'S DISEASE
     Dosage: (200 MG EVERY OTHER WEEK SUBCUTANEOUS)
     Route: 058
     Dates: start: 20090101

REACTIONS (3)
  - ABSCESS [None]
  - HERNIA REPAIR [None]
  - OBSTRUCTION [None]
